FAERS Safety Report 24743832 (Version 1)
Quarter: 2024Q4

REPORT INFORMATION
  Report Type: Spontaneous
  Country: US (occurrence: None)
  Receive Date: 20241217
  Receipt Date: 20241217
  Transmission Date: 20250115
  Serious: Yes (Other)
  Sender: Public
  Company Number: None

PATIENT
  Age: 67 Year
  Sex: Female

DRUGS (8)
  1. ENBREL [Suspect]
     Active Substance: ETANERCEPT
     Indication: Ankylosing spondylitis
     Dosage: OTHER FREQUENCY : EVERY14DAYS;?
     Route: 058
     Dates: start: 20210330
  2. ASPIRIN LOW TAB 81 MG EC [Concomitant]
  3. ATORVASTATIN TAB 80MG [Concomitant]
  4. BRILINTA TAB 90MG [Concomitant]
  5. ENBREL [Concomitant]
     Active Substance: ETANERCEPT
  6. METOPROL SUC TAB 25MG ER [Concomitant]
  7. NITROGLYCERN SUB 0.4MG [Concomitant]
  8. PROTONIX TAB 40MG [Concomitant]

REACTIONS (1)
  - Myocardial infarction [None]

NARRATIVE: CASE EVENT DATE: 20241127
